FAERS Safety Report 8321221-1 (Version None)
Quarter: 2012Q2

REPORT INFORMATION
  Report Type: 
  Country: None (occurrence: None)
  Receive Date: 20120426
  Receipt Date: 20120411
  Transmission Date: 20120825
  Serious: Yes (Hospitalization)
  Sender: FDA-Public Use
  Company Number: B0794717A

PATIENT
  Sex: Female

DRUGS (9)
  1. ALUMINUM HYDROXIDE AND MAGNESIUM TRISILICATE [Concomitant]
  2. RANITIDINE HYDROCHLORIDE [Suspect]
     Indication: PREMEDICATION
     Dosage: 50 MG/ SINGLE DOSE / INTRAVENOUS
     Route: 042
     Dates: start: 20120306, end: 20120306
  3. NON-GSK PROPRANOL HCL [Concomitant]
  4. CETUXIMAB (FORMULATION UNKNOWN) (CETUXIMAB) [Suspect]
     Indication: LARYNGEAL CANCER
     Dosage: 375 MG / SINGLE DOSE / INTRAVENOUS
     Route: 042
     Dates: start: 20120306, end: 20120306
  5. DEXCHLORPHENIRAMINE MALEATE [Suspect]
     Indication: PREMEDICATION
     Dosage: 5 MG / SINGLE DOSE / INTRAVENOUS
     Route: 042
     Dates: start: 20120306, end: 20120306
  6. ZOPICLONE [Concomitant]
  7. FUROSEMIDE [Concomitant]
  8. DEXAMETHASONE NA PO4 SOLUTION FOR INJECTION (DEXAMETHASONE NA PO4) [Suspect]
     Indication: PREMEDICATION
     Dosage: 20 MG / SINGLE DOSE / INTRAVENOUS
     Route: 042
     Dates: start: 20120306, end: 20120306
  9. SPIRONOLACTONE [Concomitant]

REACTIONS (4)
  - GASTRODUODENAL ULCER [None]
  - ANAEMIA [None]
  - MELAENA [None]
  - PLATELET COUNT DECREASED [None]
